FAERS Safety Report 19874209 (Version 3)
Quarter: 2023Q1

REPORT INFORMATION
  Report Type: Spontaneous
  Country: US (occurrence: US)
  Receive Date: 20210923
  Receipt Date: 20230329
  Transmission Date: 20230418
  Serious: Yes (Other)
  Sender: FDA-Public Use
  Company Number: US-PFIZER INC-2020486098

PATIENT
  Age: 75 Year
  Sex: Female
  Weight: 62.6 kg

DRUGS (3)
  1. ARTHROTEC [Suspect]
     Active Substance: DICLOFENAC SODIUM\MISOPROSTOL
     Indication: Spondylitis
     Dosage: 1 DF, 2X/DAY; (75MG/200MCG; ONE TABLET TWICE A DAY BY MOUTH)
     Route: 048
  2. ARTHROTEC [Suspect]
     Active Substance: DICLOFENAC SODIUM\MISOPROSTOL
     Indication: Transient ischaemic attack
     Dosage: 2 DF, DAILY (1 PILL IN THE MORNING AND 1 PILL AT NIGHT, ROUND PILL)
     Route: 048
  3. ARTHROTEC [Suspect]
     Active Substance: DICLOFENAC SODIUM\MISOPROSTOL
     Indication: Osteoarthritis

REACTIONS (5)
  - Cataract [Unknown]
  - Bone disorder [Unknown]
  - Arthritis [Unknown]
  - Dysarthria [Unknown]
  - Off label use [Unknown]
